FAERS Safety Report 13504355 (Version 5)
Quarter: 2017Q3

REPORT INFORMATION
  Report Type: Report from Study
  Country: BR (occurrence: BR)
  Receive Date: 20170502
  Receipt Date: 20170815
  Transmission Date: 20171127
  Serious: Yes (Other)
  Sender: FDA-Public Use
  Company Number: BR-JNJFOC-20170429635

PATIENT
  Age: 50 Year
  Sex: Female
  Weight: 56.5 kg

DRUGS (9)
  1. METFORMINE [Concomitant]
     Active Substance: METFORMIN HYDROCHLORIDE
     Route: 065
  2. SIMPONI [Suspect]
     Active Substance: GOLIMUMAB
     Indication: RHEUMATOID ARTHRITIS
     Route: 058
     Dates: start: 20170319, end: 20170515
  3. CAPTOPRIL. [Concomitant]
     Active Substance: CAPTOPRIL
     Route: 065
  4. GLIBENCLAMIDA [Concomitant]
     Active Substance: GLYBURIDE
     Route: 065
  5. PREDNISON [Concomitant]
     Active Substance: PREDNISONE
     Route: 065
  6. AZATHIOPRINE. [Concomitant]
     Active Substance: AZATHIOPRINE
     Route: 065
  7. GLICEFOR [Concomitant]
     Route: 065
  8. CORTICORTEN [Concomitant]
     Active Substance: PREDNISONE
     Route: 065
  9. COLCHICINE. [Concomitant]
     Active Substance: COLCHICINE
     Route: 065

REACTIONS (4)
  - Drug ineffective [Unknown]
  - Bone disorder [Not Recovered/Not Resolved]
  - Joint swelling [Not Recovered/Not Resolved]
  - Urinary tract infection [Not Recovered/Not Resolved]

NARRATIVE: CASE EVENT DATE: 201703
